FAERS Safety Report 11873353 (Version 1)
Quarter: 2015Q4

REPORT INFORMATION
  Report Type: Spontaneous
  Country: GB (occurrence: GB)
  Receive Date: 20151228
  Receipt Date: 20151228
  Transmission Date: 20160305
  Serious: Yes (Other)
  Sender: FDA-Public Use
  Company Number: GB-TEVA-619420ACC

PATIENT
  Age: 85 Year
  Sex: Female
  Weight: 87 kg

DRUGS (10)
  1. ASPIRIN. [Concomitant]
     Active Substance: ASPIRIN
     Dosage: 1 DOSAGE FORMS DAILY;
     Dates: start: 20150216
  2. NITROFURANTOIN. [Suspect]
     Active Substance: NITROFURANTOIN
     Dates: start: 20151208
  3. METFORMIN [Concomitant]
     Active Substance: METFORMIN HYDROCHLORIDE
     Dosage: 1 DOSAGE FORMS DAILY;
     Dates: start: 20150216
  4. RABEPRAZOLE [Concomitant]
     Active Substance: RABEPRAZOLE
     Dosage: TAKE APPROXIMATELY 3 PER WEEK.
     Dates: start: 20150216
  5. TRIMETHOPRIM. [Concomitant]
     Active Substance: TRIMETHOPRIM
     Dosage: TAKE ONE TWICE DAILY FOR 7 DAYS, THEN ONE AT NIGHT.
     Dates: start: 20151208
  6. FUROSEMIDE. [Concomitant]
     Active Substance: FUROSEMIDE
     Dosage: 1 DOSAGE FORMS DAILY; EACH MORNING.
     Dates: start: 20150320
  7. ATORVASTATIN [Concomitant]
     Active Substance: ATORVASTATIN
     Dosage: 1 DOSAGE FORMS DAILY;
     Dates: start: 20150216
  8. GLYCERYL TRINITRATE [Concomitant]
     Active Substance: NITROGLYCERIN
     Dates: start: 20150216
  9. IMDUR [Concomitant]
     Active Substance: ISOSORBIDE MONONITRATE
     Dosage: 1 DOSAGE FORMS DAILY;
     Dates: start: 20150216
  10. PARACETAMOL [Concomitant]
     Active Substance: ACETAMINOPHEN
     Dosage: 8 DOSAGE FORMS DAILY; WHEN REQUIRED.
     Dates: start: 20151030, end: 20151109

REACTIONS (1)
  - Hallucination [Unknown]

NARRATIVE: CASE EVENT DATE: 20151209
